FAERS Safety Report 8936072 (Version 1)
Quarter: 2012Q4

REPORT INFORMATION
  Report Type: 
  Country: GB (occurrence: GB)
  Receive Date: 20121130
  Receipt Date: 20121130
  Transmission Date: 20130627
  Serious: Yes (Other)
  Sender: FDA-Public Use
  Company Number: GB-ACCORD-015371

PATIENT
  Age: 74 Year
  Sex: Female

DRUGS (1)
  1. MYCOPHENOLATE MOFETIL [Suspect]
     Indication: LIVER TRANSPLANT

REACTIONS (4)
  - Change of bowel habit [Unknown]
  - Cytomegalovirus gastrointestinal infection [Unknown]
  - Colonoscopy abnormal [Unknown]
  - Gastrointestinal mucosal disorder [Unknown]
